FAERS Safety Report 16018046 (Version 1)
Quarter: 2019Q1

REPORT INFORMATION
  Report Type: Spontaneous
  Country: CN (occurrence: CN)
  Receive Date: 20190228
  Receipt Date: 20190228
  Transmission Date: 20190418
  Serious: Yes (Hospitalization)
  Sender: FDA-Public Use
  Company Number: CN-ASTRAZENECA-2019SE30930

PATIENT
  Age: 8882 Day
  Sex: Female
  Weight: 61 kg

DRUGS (3)
  1. SOLU-MEDROL [Suspect]
     Active Substance: METHYLPREDNISOLONE SODIUM SUCCINATE
     Route: 041
     Dates: start: 20190115, end: 20190119
  2. NEXIUM [Suspect]
     Active Substance: ESOMEPRAZOLE MAGNESIUM
     Route: 048
     Dates: start: 20190116, end: 20190202
  3. METHAZOLAMIDE. [Suspect]
     Active Substance: METHAZOLAMIDE
     Route: 065
     Dates: start: 20190116, end: 20190202

REACTIONS (1)
  - Epidermolysis bullosa [Not Recovered/Not Resolved]

NARRATIVE: CASE EVENT DATE: 20190209
